FAERS Safety Report 9656051 (Version 2)
Quarter: 2014Q1

REPORT INFORMATION
  Report Type: Spontaneous
  Country: JP (occurrence: JP)
  Receive Date: 20131030
  Receipt Date: 20140328
  Transmission Date: 20141002
  Serious: No
  Sender: FDA-Public Use
  Company Number: JP-AMGEN-JPNSP2013076337

PATIENT
  Age: 73 Year
  Sex: Female
  Weight: 41 kg

DRUGS (15)
  1. PRALIA [Suspect]
     Indication: OSTEOPOROSIS
     Dosage: 60 MG, UNK
     Route: 058
     Dates: start: 20130905
  2. OXAROL [Concomitant]
     Indication: HYPERPARATHYROIDISM SECONDARY
     Dosage: 5 MUG, Q3WK
     Route: 065
     Dates: start: 20130130, end: 20130916
  3. REGPARA [Concomitant]
     Indication: HYPERPARATHYROIDISM SECONDARY
     Dosage: 25 MG, Q3WK
     Route: 048
     Dates: start: 20130121
  4. FOSRENOL [Concomitant]
     Indication: HYPERPHOSPHATAEMIA
     Dosage: 500 MG, TID
     Route: 048
     Dates: start: 20130626
  5. METHYCOBAL [Concomitant]
     Indication: NEUROPATHY PERIPHERAL
     Dosage: 500 MUG, TID
     Route: 048
     Dates: start: 20101027
  6. BIO-THREE [Concomitant]
     Indication: GASTROINTESTINAL DISORDER
     Dosage: 1 DF, TID
     Route: 048
     Dates: start: 20101224
  7. RABEPRAZOLE SODIUM [Concomitant]
     Indication: GASTROOESOPHAGEAL REFLUX DISEASE
     Dosage: 10 MG, QD
     Route: 048
     Dates: start: 20091128
  8. RIVOTRIL [Concomitant]
     Indication: RESTLESS LEGS SYNDROME
     Dosage: 0.5 MG, QD
     Route: 048
     Dates: start: 20121210
  9. SELOKEN                            /00376902/ [Concomitant]
     Indication: HYPERTENSION
     Dosage: 20 MG, QD
     Route: 048
     Dates: start: 20030626, end: 20131002
  10. EDIROL [Concomitant]
     Indication: OSTEOPOROSIS
     Dosage: 0.75 MUG, QD
     Route: 048
     Dates: start: 20130905, end: 20130913
  11. ASPARA-CA [Concomitant]
     Indication: OSTEOPOROSIS
     Dosage: 200 MG, BID
     Route: 048
     Dates: start: 20130905, end: 20130913
  12. ROZEREM [Concomitant]
     Indication: INSOMNIA
     Dosage: 8 MG, QD
     Route: 048
     Dates: start: 20130830
  13. NESP [Concomitant]
     Indication: NEPHROGENIC ANAEMIA
     Dosage: 120 MUG, QWK
     Route: 042
     Dates: start: 20110815, end: 20131115
  14. LANTUS [Concomitant]
     Dosage: UNK
     Route: 065
  15. NOVORAPID [Concomitant]
     Dosage: UNK
     Route: 065

REACTIONS (2)
  - Blood parathyroid hormone increased [Unknown]
  - Hypocalcaemia [Recovering/Resolving]
